FAERS Safety Report 8381227-3 (Version None)
Quarter: 2012Q2

REPORT INFORMATION
  Report Type: 
  Country: None (occurrence: None)
  Receive Date: 20120523
  Receipt Date: 20120520
  Transmission Date: 20120825
  Serious: Yes (Other)
  Sender: FDA-Public Use
  Company Number: AU-ABBOTT-12P-008-0936647-00

PATIENT
  Sex: Female

DRUGS (1)
  1. HUMIRA [Suspect]
     Indication: PRODUCT USED FOR UNKNOWN INDICATION

REACTIONS (5)
  - SYSTEMIC LUPUS ERYTHEMATOSUS [None]
  - DOUBLE STRANDED DNA ANTIBODY [None]
  - INFECTION [None]
  - PERICARDITIS [None]
  - ANTINUCLEAR ANTIBODY INCREASED [None]
